FAERS Safety Report 5678379-2 (Version None)
Quarter: 2008Q1

REPORT INFORMATION
  Report Type: 
  Country: None (occurrence: None)
  Receive Date: 20080320
  Receipt Date: 20080304
  Transmission Date: 20080703
  Serious: Yes (Hospitalization)
  Sender: FDA-Public Use
  Company Number: TRP_01085_2008

PATIENT
  Sex: Female

DRUGS (4)
  1. RIBASPHERE [Suspect]
     Indication: HEPATITIS C VIRUS
     Dosage: 6 DF, ORAL
     Route: 048
     Dates: start: 20070610
  2. PEGASYS [Suspect]
     Indication: HEPATITIS C VIRUS
     Dosage: 180 MG 1X.WEEK; SUBCUTANEOUS
     Route: 058
     Dates: start: 20070610
  3. PROCRIT [Concomitant]
  4. NEUPOGEN [Concomitant]

REACTIONS (18)
  - ALOPECIA [None]
  - BACK PAIN [None]
  - BRONCHITIS CHRONIC [None]
  - CANDIDIASIS [None]
  - CONDUCTION DISORDER [None]
  - COUGH [None]
  - DRUG INEFFECTIVE [None]
  - DYSGEUSIA [None]
  - DYSPNOEA EXERTIONAL [None]
  - ELECTROCARDIOGRAM ABNORMAL [None]
  - FATIGUE [None]
  - HAEMOGLOBIN DECREASED [None]
  - MUSCULOSKELETAL CHEST PAIN [None]
  - RED BLOOD CELL COUNT DECREASED [None]
  - SERUM FERRITIN INCREASED [None]
  - SPUTUM DISCOLOURED [None]
  - WEIGHT DECREASED [None]
  - WHITE BLOOD CELL COUNT DECREASED [None]
